FAERS Safety Report 8361112-3 (Version None)
Quarter: 2012Q2

REPORT INFORMATION
  Report Type: 
  Country: None (occurrence: None)
  Receive Date: 20120515
  Receipt Date: 20120509
  Transmission Date: 20120825
  Serious: Yes (Hospitalization)
  Sender: FDA-Public Use
  Company Number: US-BAYER-201037807NA

PATIENT
  Age: 43 Year
  Sex: Female
  Weight: 61.678 kg

DRUGS (8)
  1. YAZ [Suspect]
     Indication: CONTRACEPTION
  2. YAZ [Suspect]
     Indication: PREMENSTRUAL SYNDROME
     Dosage: UNK
     Route: 048
     Dates: start: 20090201, end: 20090911
  3. ZOLOFT [Concomitant]
  4. IBUPROFEN [Concomitant]
     Dosage: UNK
     Route: 048
     Dates: start: 19950101, end: 20090901
  5. SERTRALINE HYDROCHLORIDE [Concomitant]
     Indication: DEPRESSION
     Dosage: UNK
     Route: 048
     Dates: start: 20090201
  6. SULFAMETHOXAZOLE AND TRIMETHOPRIM [Concomitant]
     Indication: PRODUCT USED FOR UNKNOWN INDICATION
     Dosage: UNK
     Route: 048
     Dates: start: 20090721
  7. YAZ [Suspect]
     Indication: MENOPAUSAL SYMPTOMS
  8. CLONAZEPAM [Concomitant]
     Indication: PRODUCT USED FOR UNKNOWN INDICATION
     Dosage: 0.5 MG, UNK
     Route: 048

REACTIONS (3)
  - PULMONARY EMBOLISM [None]
  - CHEST PAIN [None]
  - DEEP VEIN THROMBOSIS [None]
